FAERS Safety Report 11106441 (Version 1)
Quarter: 2015Q2

REPORT INFORMATION
  Report Type: Spontaneous
  Country: US (occurrence: US)
  Receive Date: 20150512
  Receipt Date: 20150512
  Transmission Date: 20150821
  Serious: Yes (Other)
  Sender: FDA-Public Use
  Company Number: US-AUXILIUM PHARMACEUTICALS INC.-201503037

PATIENT
  Age: 44 Year
  Sex: Male

DRUGS (1)
  1. XIAFLEX [Suspect]
     Active Substance: COLLAGENASE CLOSTRIDIUM HISTOLYTICUM
     Indication: PEYRONIE^S DISEASE
     Route: 026
     Dates: start: 20150107, end: 20150107

REACTIONS (4)
  - Penile haematoma [Recovered/Resolved]
  - Penile swelling [Recovered/Resolved]
  - Penile contusion [Recovered/Resolved]
  - Penile pain [Recovered/Resolved]

NARRATIVE: CASE EVENT DATE: 20150108
